FAERS Safety Report 15017014 (Version 1)
Quarter: 2018Q2

REPORT INFORMATION
  Report Type: Spontaneous
  Country: US (occurrence: US)
  Receive Date: 20180615
  Receipt Date: 20180615
  Transmission Date: 20180711
  Serious: Yes (Death)
  Sender: FDA-Public Use
  Company Number: PHEH2018US023799

PATIENT
  Age: 72 Year
  Sex: Female

DRUGS (1)
  1. TAFINLAR [Suspect]
     Active Substance: DABRAFENIB MESYLATE
     Indication: LUNG NEOPLASM
     Dosage: 75 MG, Q12H
     Route: 048
     Dates: start: 20180121

REACTIONS (1)
  - Death [Fatal]

NARRATIVE: CASE EVENT DATE: 20180514
